FAERS Safety Report 14723280 (Version 4)
Quarter: 2018Q2

REPORT INFORMATION
  Report Type: Report from Study
  Country: CA (occurrence: CA)
  Receive Date: 20180405
  Receipt Date: 20180503
  Transmission Date: 20180711
  Serious: Yes (Death, Life-Threatening, Hospitalization)
  Sender: FDA-Public Use
  Company Number: CA-AMGEN-CANCT2018024405

PATIENT
  Age: 66 Year
  Sex: Male
  Weight: 66.4 kg

DRUGS (24)
  1. HYDROMORPHONE [Concomitant]
     Active Substance: HYDROMORPHONE
     Dosage: 4 MG, UNK
     Route: 048
     Dates: start: 20140521, end: 20180324
  2. DECADRON [Concomitant]
     Active Substance: DEXAMETHASONE
     Dosage: 20 MG, UNK
     Dates: start: 20170809, end: 20180324
  3. FENTANYL. [Concomitant]
     Active Substance: FENTANYL
     Dosage: 37 MUG, UNK
     Route: 062
     Dates: start: 20160224, end: 20180324
  4. SENOKOT [Concomitant]
     Active Substance: SENNOSIDES
     Dosage: 2 UNK, UNK
     Route: 048
     Dates: start: 20140530, end: 20180324
  5. LEVOTHYROXINE. [Concomitant]
     Active Substance: LEVOTHYROXINE
     Dosage: 75 MG, UNK
     Route: 048
     Dates: start: 20160622, end: 20180324
  6. LACTULOSE. [Concomitant]
     Active Substance: LACTULOSE
     Dosage: 30 ML, UNK
     Route: 048
     Dates: start: 20140718, end: 20180324
  7. REVLIMID [Suspect]
     Active Substance: LENALIDOMIDE
     Indication: PRODUCT USED FOR UNKNOWN INDICATION
     Dosage: UNK
     Route: 065
     Dates: start: 20150611
  8. PANTOPRAZOLE [Concomitant]
     Active Substance: PANTOPRAZOLE
     Dosage: 30-40 MG, UNK
     Route: 048
     Dates: start: 20140519, end: 20180324
  9. DALTEPARIN [Concomitant]
     Active Substance: DALTEPARIN
     Dosage: 5000 UNK, UNK
     Route: 058
     Dates: start: 20180122, end: 20180324
  10. DILAUDID [Concomitant]
     Active Substance: HYDROMORPHONE HYDROCHLORIDE
     Dosage: 1-4 MG, UNK
     Dates: start: 20180122, end: 20180324
  11. DENOSUMAB [Suspect]
     Active Substance: DENOSUMAB
     Indication: PLASMA CELL MYELOMA
     Dosage: 1.7 ML, UNK
     Route: 065
     Dates: start: 20170125, end: 20180228
  12. CARFILZOMIB [Suspect]
     Active Substance: CARFILZOMIB
     Indication: PRODUCT USED FOR UNKNOWN INDICATION
     Dosage: 20 MG/M2, UNK
     Route: 065
     Dates: start: 20170809
  13. DOMPERIDONE [Concomitant]
     Active Substance: DOMPERIDONE
     Dosage: 10 MG, UNK
     Route: 048
     Dates: start: 201504, end: 20180324
  14. SEPTRA [Concomitant]
     Active Substance: SULFAMETHOXAZOLE\TRIMETHOPRIM
     Dosage: 1 UNK, UNK
     Route: 048
     Dates: start: 20140716, end: 20180324
  15. LENALIDOMIDE [Concomitant]
     Active Substance: LENALIDOMIDE
     Dosage: 5 MG, UNK
     Dates: start: 20170809, end: 20180324
  16. ALLOPURINOL. [Concomitant]
     Active Substance: ALLOPURINOL
     Dosage: 300 MG, UNK
     Route: 048
     Dates: start: 20140802, end: 20180324
  17. ACYCLOVIR. [Concomitant]
     Active Substance: ACYCLOVIR
     Dosage: 400 MG, UNK
     Route: 048
     Dates: start: 20140716, end: 20180324
  18. CELECOXIB. [Concomitant]
     Active Substance: CELECOXIB
     Dosage: 100 MG, UNK
     Route: 048
     Dates: start: 20150601, end: 20180324
  19. DULCOLAX NOS [Concomitant]
     Active Substance: BISACODYL OR DOCUSATE SODIUM
     Dosage: 20 MG, UNK
     Route: 048
     Dates: start: 20160224, end: 20180324
  20. PROCHLORPERAZINE. [Concomitant]
     Active Substance: PROCHLORPERAZINE
     Dosage: 10 MG, UNK
     Route: 048
     Dates: start: 20140717, end: 20180324
  21. INDAPAMIDE. [Concomitant]
     Active Substance: INDAPAMIDE
     Dosage: 1.25 MG, UNK
     Route: 048
     Dates: start: 2009, end: 20180324
  22. RAMIPRIL. [Concomitant]
     Active Substance: RAMIPRIL
     Dosage: 10 MG, UNK
     Route: 048
     Dates: start: 2009, end: 20180324
  23. POTASSIUM [Concomitant]
     Active Substance: POTASSIUM
     Dosage: 16-24 MEQ, UNK
     Route: 048
     Dates: start: 20160907, end: 20180324
  24. CLAVULIN [Concomitant]
     Active Substance: AMOXICILLIN\CLAVULANIC ACID
     Dosage: 500 MG, Q8H
     Route: 048
     Dates: start: 20171220, end: 20180324

REACTIONS (5)
  - Thrombocytopenia [Recovered/Resolved]
  - Delirium [Recovered/Resolved]
  - Pneumonia [Fatal]
  - Thrombocytopenia [Recovered/Resolved]
  - White blood cell count increased [Recovered/Resolved]

NARRATIVE: CASE EVENT DATE: 20180204
